FAERS Safety Report 14308279 (Version 1)
Quarter: 2017Q4

REPORT INFORMATION
  Report Type: Spontaneous
  Country: AU (occurrence: AU)
  Receive Date: 20171220
  Receipt Date: 20171220
  Transmission Date: 20180321
  Serious: Yes (Other)
  Sender: FDA-Public Use
  Company Number: AU-BAXTER-2017BAX042601

PATIENT
  Sex: Female

DRUGS (7)
  1. ONDANSETRON-CLARIS [Suspect]
     Active Substance: ONDANSETRON
     Indication: PRODUCT USED FOR UNKNOWN INDICATION
     Dosage: REGIMEN 1.
     Route: 065
  2. FENTANYL. [Suspect]
     Active Substance: FENTANYL
     Indication: PRODUCT USED FOR UNKNOWN INDICATION
     Dosage: REGIMEN 1.
     Route: 065
  3. DICLOFENAC [Suspect]
     Active Substance: DICLOFENAC
     Indication: PRODUCT USED FOR UNKNOWN INDICATION
     Dosage: REGIMEN 1.
     Route: 065
  4. PROVIVE 1% [Suspect]
     Active Substance: PROPOFOL
     Indication: PRODUCT USED FOR UNKNOWN INDICATION
     Dosage: REGIMEN 1.
     Route: 065
  5. SYNTHETIC OXYTOCIN [Suspect]
     Active Substance: OXYTOCIN
     Indication: PRODUCT USED FOR UNKNOWN INDICATION
     Dosage: REGIMEN 1.
     Route: 065
  6. METRONIDAZOLE SANDOZ IV [Suspect]
     Active Substance: METRONIDAZOLE
     Indication: PRODUCT USED FOR UNKNOWN INDICATION
     Dosage: REGIMEN 1
     Route: 065
  7. MIDAZOLAM-CLARIS [Suspect]
     Active Substance: MIDAZOLAM HYDROCHLORIDE
     Indication: PRODUCT USED FOR UNKNOWN INDICATION
     Dosage: REGIMEN 1.
     Route: 065

REACTIONS (1)
  - Anaphylactic reaction [Unknown]
